FAERS Safety Report 5269868-3 (Version None)
Quarter: 2007Q1

REPORT INFORMATION
  Report Type: 
  Country: None (occurrence: None)
  Receive Date: 20070320
  Receipt Date: 20070313
  Transmission Date: 20070707
  Serious: Yes (Death)
  Sender: FDA-Public Use
  Company Number: RU-GLAXOSMITHKLINE-B0460140A

PATIENT
  Age: 36 Year
  Sex: Female
  Weight: 82 kg

DRUGS (2)
  1. LAMOTRIGINE [Suspect]
     Indication: PARTIAL SEIZURES
     Route: 048
     Dates: start: 20060103, end: 20070220
  2. PHENYTOIN [Concomitant]
     Indication: EPILEPSY
     Dosage: 400MG THREE TIMES PER DAY
     Route: 048
     Dates: start: 20031101, end: 20070220

REACTIONS (2)
  - CARDIAC FAILURE ACUTE [None]
  - FALL [None]
